FAERS Safety Report 7689251-0 (Version None)
Quarter: 2011Q3

REPORT INFORMATION
  Report Type: 
  Country: None (occurrence: None)
  Receive Date: 20110817
  Receipt Date: 20110811
  Transmission Date: 20111222
  Serious: Yes (Other)
  Sender: FDA-Public Use
  Company Number: GB-AMGEN-GBRCT2011040945

PATIENT
  Age: 51 Year
  Sex: Male

DRUGS (6)
  1. CAPECITABINE [Concomitant]
     Dosage: UNK
     Dates: start: 20110517, end: 20110724
  2. OXALIPLATIN [Concomitant]
     Dosage: UNK
     Dates: start: 20110517
  3. PANITUMUMAB [Suspect]
     Indication: GASTROOESOPHAGEAL CANCER
     Dosage: UNK
     Dates: start: 20110517
  4. DOMPERIDONE [Concomitant]
     Indication: NAUSEA
     Dosage: UNK
  5. LANSOPRAZOLE [Concomitant]
     Indication: REFLUX GASTRITIS
     Dosage: UNK
  6. EPIRUBICIN [Concomitant]
     Dosage: UNK
     Dates: start: 20110517

REACTIONS (1)
  - PERIPHERAL ISCHAEMIA [None]
